FAERS Safety Report 4410942-9 (Version None)
Quarter: 2004Q2

REPORT INFORMATION
  Report Type: 
  Country: None (occurrence: None)
  Receive Date: 20040630
  Receipt Date: 20040419
  Transmission Date: 20050107
  Serious: No
  Sender: FDA-Public Use
  Company Number: 04P-163-0257993-00

PATIENT
  Age: 21 Year
  Sex: Female
  Weight: 47.6277 kg

DRUGS (3)
  1. HUMIRA [Suspect]
     Indication: RHEUMATOID ARTHRITIS
     Dosage: 40 MG, 1 IN 2 WK, SUBCUTANEOUS
     Route: 058
     Dates: start: 20031201, end: 20040201
  2. HUMIRA [Suspect]
     Indication: RHEUMATOID ARTHRITIS
     Dosage: 40 MG, 1 IN 2 WK, SUBCUTANEOUS
     Route: 058
     Dates: start: 20040401
  3. BIRTH CONTROL PILL [Concomitant]

REACTIONS (4)
  - CERVICAL DYSPLASIA [None]
  - CERVICITIS [None]
  - CONDYLOMA ACUMINATUM [None]
  - VAGINAL MYCOSIS [None]
